FAERS Safety Report 23643083 (Version 1)
Quarter: 2024Q1

REPORT INFORMATION
  Report Type: Spontaneous
  Country: CA (occurrence: CA)
  Receive Date: 20240318
  Receipt Date: 20240318
  Transmission Date: 20240410
  Serious: Yes (Other)
  Sender: FDA-Public Use
  Company Number: CA-PFIZER INC-202400062807

PATIENT
  Age: 70 Year
  Sex: Male
  Weight: 79.365 kg

DRUGS (1)
  1. ATIVAN [Suspect]
     Active Substance: LORAZEPAM
     Indication: Central sleep apnoea syndrome
     Dosage: 1 MG

REACTIONS (9)
  - Hypertension [Unknown]
  - Atrial fibrillation [Unknown]
  - Extrasystoles [Unknown]
  - Somnolence [Recovering/Resolving]
  - Asthenia [Unknown]
  - Irritability [Recovering/Resolving]
  - Nightmare [Recovering/Resolving]
  - Off label use [Unknown]
  - Drug effective for unapproved indication [Unknown]

NARRATIVE: CASE EVENT DATE: 20240226
